FAERS Safety Report 9715130 (Version 1)
Quarter: 2013Q4

REPORT INFORMATION
  Report Type: Report from Study
  Country: FR (occurrence: FR)
  Receive Date: 20131126
  Receipt Date: 20131126
  Transmission Date: 20140711
  Serious: Yes (Other)
  Sender: FDA-Public Use
  Company Number: FR-BAXTER-2013BAX047549

PATIENT
  Age: 55 Year
  Sex: Female

DRUGS (2)
  1. ENDOXAN 50 MG, COMPRIM? ENROB? [Suspect]
     Indication: PEMPHIGOID
     Route: 048
  2. DAPSONE [Suspect]
     Indication: PEMPHIGOID

REACTIONS (2)
  - Lymphopenia [Recovered/Resolved]
  - Disease progression [Unknown]
